FAERS Safety Report 9691904 (Version 1)
Quarter: 2013Q4

REPORT INFORMATION
  Report Type: Report from Study
  Country: US (occurrence: US)
  Receive Date: 20131117
  Receipt Date: 20131117
  Transmission Date: 20140711
  Serious: Yes (Other)
  Sender: FDA-Public Use
  Company Number: US-ROCHE-1303718

PATIENT
  Sex: 0

DRUGS (1)
  1. VEMURAFENIB [Suspect]
     Indication: PAPILLARY THYROID CANCER
     Route: 065

REACTIONS (12)
  - Lipase increased [Unknown]
  - Squamous cell carcinoma [Unknown]
  - Photosensitivity reaction [Unknown]
  - Palmar-plantar erythrodysaesthesia syndrome [Unknown]
  - Rash [Unknown]
  - Decreased appetite [Unknown]
  - Fatigue [Unknown]
  - Diarrhoea [Unknown]
  - Hyperkeratosis [Unknown]
  - Weight decreased [Unknown]
  - Arthralgia [Unknown]
  - Alopecia [Unknown]
